FAERS Safety Report 20055809 (Version 1)
Quarter: 2021Q4

REPORT INFORMATION
  Report Type: Report from Study
  Country: US (occurrence: US)
  Receive Date: 20211111
  Receipt Date: 20211111
  Transmission Date: 20220303
  Serious: Yes (Hospitalization)
  Sender: FDA-Public Use
  Company Number: US-AMGEN-USACT2021171116

PATIENT
  Age: 73 Year
  Sex: Male
  Weight: 68.82 kg

DRUGS (6)
  1. AMG-510 [Suspect]
     Active Substance: AMG-510
     Indication: K-ras gene mutation
     Dosage: 960 MILLIGRAM
     Route: 048
     Dates: start: 20210804
  2. AMG-510 [Suspect]
     Active Substance: AMG-510
     Indication: Neoplasm
  3. PANITUMUMAB [Suspect]
     Active Substance: PANITUMUMAB
     Indication: K-ras gene mutation
     Dosage: 335 MILLIGRAM
     Route: 042
     Dates: start: 20210804
  4. PANITUMUMAB [Suspect]
     Active Substance: PANITUMUMAB
     Indication: Neoplasm
  5. TRAMETINIB [Suspect]
     Active Substance: TRAMETINIB
     Indication: K-ras gene mutation
     Dosage: 1.5 MILLIGRAM
     Route: 048
     Dates: start: 20210804
  6. TRAMETINIB [Suspect]
     Active Substance: TRAMETINIB
     Indication: Neoplasm

REACTIONS (4)
  - Diarrhoea [Recovered/Resolved]
  - Diarrhoea [Recovered/Resolved]
  - Dehydration [Recovered/Resolved]
  - Acute kidney injury [Recovered/Resolved]

NARRATIVE: CASE EVENT DATE: 20210818
